FAERS Safety Report 7829195-4 (Version None)
Quarter: 2011Q4

REPORT INFORMATION
  Report Type: 
  Country: None (occurrence: None)
  Receive Date: 20111020
  Receipt Date: 20111014
  Transmission Date: 20120403
  Serious: Yes (Hospitalization, Other)
  Sender: FDA-Public Use
  Company Number: PHEH2009US12471

PATIENT
  Sex: Female

DRUGS (36)
  1. PROCHLORPERAZINE MALEATE [Concomitant]
     Dosage: 1 DF, PRN
     Route: 048
  2. ZYRTEC [Concomitant]
  3. LORAZEPAM [Concomitant]
  4. WELLBUTRIN [Concomitant]
  5. NIZORAL [Concomitant]
  6. COLACE [Concomitant]
  7. SODIUM PHOSPHATES [Concomitant]
  8. AREDIA [Suspect]
     Dosage: 30 MG, UNK
  9. ZOMETA [Suspect]
  10. NAPROSYN [Concomitant]
  11. NEURONTIN [Concomitant]
     Dosage: 1 DF, PRN
     Route: 048
  12. HYDROCHLOROTHIAZIDE [Concomitant]
  13. METHOTREXATE [Concomitant]
  14. RALOXIFENE HCL [Concomitant]
  15. PREDNISONE [Concomitant]
  16. BIAXIN [Concomitant]
  17. OXYCODONE HCL [Concomitant]
  18. DEXAMETHASONE SODIUM PHOSPHATE [Concomitant]
     Dosage: 2 DRP, BID PRN
  19. DEMEROL [Concomitant]
     Route: 030
  20. FLUOROURACIL [Concomitant]
  21. BETAMETHASONE [Concomitant]
  22. GLYCERIN [Concomitant]
  23. AREDIA [Suspect]
     Dosage: 90 MG, QMO
     Route: 042
     Dates: start: 20000124
  24. FASLODEX [Concomitant]
     Dates: start: 20021001
  25. BENADRYL [Concomitant]
     Dosage: 1 DF, QHS PRN
     Route: 048
  26. ZOFRAN [Concomitant]
     Route: 042
  27. GEMZAR [Concomitant]
  28. FENTANYL [Concomitant]
  29. ACYCLOVIR [Concomitant]
  30. CARBOPLATIN [Concomitant]
  31. HYDROXYZINE [Concomitant]
  32. ROXICET [Concomitant]
  33. AUGMENTIN '125' [Concomitant]
  34. MIRALAX [Concomitant]
     Dosage: 17 G, QD
  35. VERSED [Concomitant]
  36. CYTOXAN [Concomitant]

REACTIONS (58)
  - BACK PAIN [None]
  - NEOPLASM PROGRESSION [None]
  - METASTASES TO BONE [None]
  - HEPATIC CYST [None]
  - RENAL CYST [None]
  - OSTEOLYSIS [None]
  - ESSENTIAL HYPERTENSION [None]
  - HAEMORRHOIDS [None]
  - FLANK PAIN [None]
  - ASTHMA [None]
  - CONJUNCTIVITIS VIRAL [None]
  - EYE PAIN [None]
  - PHYSICAL DISABILITY [None]
  - METASTASES TO SPINE [None]
  - HAEMATOCHEZIA [None]
  - HERPES ZOSTER [None]
  - NASAL ULCER [None]
  - URTICARIA [None]
  - ERYTHEMA OF EYELID [None]
  - EMOTIONAL DISTRESS [None]
  - BONE PAIN [None]
  - CORONARY ARTERY DISEASE [None]
  - ARTHRALGIA [None]
  - DYSPEPSIA [None]
  - SINUSITIS [None]
  - OSTEOARTHRITIS [None]
  - SEASONAL ALLERGY [None]
  - ANXIETY [None]
  - GENERAL PHYSICAL HEALTH DETERIORATION [None]
  - METASTASES TO LUNG [None]
  - DIVERTICULUM [None]
  - HYPERMETABOLISM [None]
  - PAIN IN EXTREMITY [None]
  - DYSHIDROSIS [None]
  - CHEST PAIN [None]
  - MIGRAINE [None]
  - INFECTION [None]
  - OSTEOPOROSIS [None]
  - EYE SWELLING [None]
  - CELLULITIS [None]
  - COLONIC POLYP [None]
  - DEPRESSION [None]
  - PERIORBITAL CELLULITIS [None]
  - OSTEONECROSIS OF JAW [None]
  - EYE ALLERGY [None]
  - DUODENOGASTRIC REFLUX [None]
  - CANDIDIASIS [None]
  - ANAEMIA [None]
  - MENINGITIS [None]
  - PAIN [None]
  - DEFORMITY [None]
  - ROAD TRAFFIC ACCIDENT [None]
  - ECZEMA [None]
  - SPINAL OSTEOARTHRITIS [None]
  - NEOPLASM MALIGNANT [None]
  - METASTASES TO PELVIS [None]
  - CELLULITIS ORBITAL [None]
  - VITREOUS FLOATERS [None]
